FAERS Safety Report 5721064-9 (Version None)
Quarter: 2008Q2

REPORT INFORMATION
  Report Type: 
  Country: None (occurrence: None)
  Receive Date: 20080423
  Receipt Date: 20071113
  Transmission Date: 20081010
  Serious: Yes (Other)
  Sender: FDA-Public Use
  Company Number: 251303

PATIENT
  Age: 47 Year
  Sex: Male
  Weight: 75.7 kg

DRUGS (1)
  1. AVASTIN [Suspect]
     Indication: ANAPLASTIC ASTROCYTOMA
     Dosage: 824 MG, Q2W, INTRAVENOUS
     Route: 042
     Dates: start: 20070713

REACTIONS (1)
  - LARGE INTESTINE PERFORATION [None]
